FAERS Safety Report 6077594-6 (Version None)
Quarter: 2009Q1

REPORT INFORMATION
  Report Type: 
  Country: None (occurrence: None)
  Receive Date: 20090213
  Receipt Date: 20090206
  Transmission Date: 20090719
  Serious: Yes (Other)
  Sender: FDA-Public Use
  Company Number: GB-ELI_LILLY_AND_COMPANY-GB200812003217

PATIENT
  Sex: Female
  Weight: 92 kg

DRUGS (6)
  1. BYETTA [Suspect]
     Dosage: UNK, UNKNOWN
     Route: 058
  2. ROSIGLITAZONE [Concomitant]
     Dosage: 8 MG, UNK
     Route: 048
     Dates: end: 20081101
  3. METFORMIN HCL [Concomitant]
     Dosage: 1 G, UNK
     Dates: end: 20081101
  4. AMITRIPTYLINE HCL [Concomitant]
     Dosage: 150 MG, UNK
     Route: 048
  5. OMEPRAZOLE [Concomitant]
     Dosage: 20 MG, UNK
     Route: 048
     Dates: end: 20081101
  6. ORLISTAT [Concomitant]
     Dosage: 150 MG, UNK

REACTIONS (1)
  - NEPHRITIS [None]
